FAERS Safety Report 8312909-7 (Version None)
Quarter: 2012Q2

REPORT INFORMATION
  Report Type: 
  Country: None (occurrence: None)
  Receive Date: 20120424
  Receipt Date: 20120411
  Transmission Date: 20120825
  Serious: Yes (Hospitalization)
  Sender: FDA-Public Use
  Company Number: FK201201098

PATIENT
  Age: 77 Year
  Sex: Male
  Weight: 77 kg

DRUGS (7)
  1. ATENOLOL [Concomitant]
  2. BEVACIZUMAB (BEVACIZUMAB) (BEVACIZUMAB) [Suspect]
     Indication: GASTRIC CANCER
     Dosage: 570 MG,  INTRAVENOUS DRIP
     Route: 041
     Dates: start: 20111018, end: 20111018
  3. OMEPRAZOLE [Concomitant]
  4. CAPECITABINE [Suspect]
     Indication: GASTRIC CANCER
     Dosage: 1000 MG, ORAL
     Route: 048
     Dates: start: 20111018, end: 20111018
  5. CISPLATIN [Suspect]
     Indication: GASTRIC CANCER
     Dosage: 110 MG, INTRAVENOUS (NOT OTHER SPECIFIED)
     Dates: start: 20111018, end: 20111018
  6. DOMPERIDONE (DOMPERIDONE) [Concomitant]
  7. EPIRUBICIN [Suspect]
     Indication: GASTRIC CANCER
     Dosage: 90 MG, INTRAVENOUS (NOT OTHERWISE SPECIFIED)
     Route: 042
     Dates: start: 20111018, end: 20111018

REACTIONS (4)
  - DEHYDRATION [None]
  - GASTRITIS [None]
  - DIARRHOEA [None]
  - NAUSEA [None]
